FAERS Safety Report 18412753 (Version 2)
Quarter: 2020Q4

REPORT INFORMATION
  Report Type: Spontaneous
  Country: AU (occurrence: AU)
  Receive Date: 20201021
  Receipt Date: 20201230
  Transmission Date: 20210114
  Serious: Yes (Other)
  Sender: FDA-Public Use
  Company Number: AU-009507513-2010AUS007687

PATIENT
  Age: 7 Year
  Sex: Male

DRUGS (2)
  1. NASONEX [Suspect]
     Active Substance: MOMETASONE FUROATE
     Indication: MULTIPLE ALLERGIES
     Dosage: UNK
  2. LORATADINE. [Suspect]
     Active Substance: LORATADINE
     Dosage: 3 DF, QD (ORODISPERSIBLE TABLET)

REACTIONS (2)
  - Adverse drug reaction [Unknown]
  - Incorrect dose administered [Unknown]
